FAERS Safety Report 8356736-3 (Version None)
Quarter: 2012Q2

REPORT INFORMATION
  Report Type: 
  Country: None (occurrence: None)
  Receive Date: 20120514
  Receipt Date: 20120510
  Transmission Date: 20120825
  Serious: Yes (Death, Other)
  Sender: FDA-Public Use
  Company Number: PHHY2012JP040123

PATIENT

DRUGS (1)
  1. EXELON [Suspect]
     Route: 062

REACTIONS (3)
  - DEATH [None]
  - MALAISE [None]
  - ACCIDENT [None]
